FAERS Safety Report 7625389-1 (Version None)
Quarter: 2011Q3

REPORT INFORMATION
  Report Type: 
  Country: None (occurrence: None)
  Receive Date: 20110721
  Receipt Date: 20110718
  Transmission Date: 20111222
  Serious: No
  Sender: FDA-Public Use
  Company Number: US-PFIZER INC-2011163318

PATIENT
  Sex: Male
  Weight: 78 kg

DRUGS (4)
  1. VALSARTAN [Concomitant]
     Indication: BLOOD PRESSURE ABNORMAL
     Dosage: UNK
     Route: 048
  2. LYRICA [Suspect]
     Indication: INTERVERTEBRAL DISC INJURY
     Dosage: 75 MG, 2X/DAY
     Route: 048
     Dates: start: 20110701
  3. LYRICA [Suspect]
     Indication: NERVE INJURY
  4. ACETYLSALICYLIC ACID [Concomitant]
     Indication: BLOOD PRESSURE ABNORMAL
     Dosage: 81 MG, DAILY
     Route: 048

REACTIONS (1)
  - CONSTIPATION [None]
